FAERS Safety Report 4657800-2 (Version None)
Quarter: 2005Q2

REPORT INFORMATION
  Report Type: 
  Country: None (occurrence: None)
  Receive Date: 20050505
  Receipt Date: 20030805
  Transmission Date: 20051028
  Serious: Yes (Other)
  Sender: FDA-Public Use
  Company Number: US-SHR-03-012681

PATIENT

DRUGS (2)
  1. REFLUDAN [Suspect]
     Dosage: RENAL DOSE, INTRAVENOUS;  STANDARD DOSE, INTRAVENOUS
     Route: 042
     Dates: start: 20030802, end: 20030802
  2. REFLUDAN [Suspect]
     Dosage: RENAL DOSE, INTRAVENOUS;  STANDARD DOSE, INTRAVENOUS
     Route: 042
     Dates: start: 20030802, end: 20030802

REACTIONS (3)
  - ACCIDENTAL OVERDOSE [None]
  - EPISTAXIS [None]
  - HAEMORRHAGE [None]
